FAERS Safety Report 14197387 (Version 2)
Quarter: 2018Q1

REPORT INFORMATION
  Report Type: Spontaneous
  Country: US (occurrence: US)
  Receive Date: 20171116
  Receipt Date: 20180215
  Transmission Date: 20180508
  Serious: No
  Sender: FDA-Public Use
  Company Number: US-RADIUS HEALTH INC.-2017US000181

PATIENT
  Age: 61 Year
  Sex: Female
  Weight: 48.73 kg

DRUGS (1)
  1. TYMLOS [Suspect]
     Active Substance: ABALOPARATIDE
     Indication: OSTEOPOROSIS POSTMENOPAUSAL
     Dosage: 80 MCG DAILY
     Dates: start: 201709

REACTIONS (8)
  - Dizziness [Recovered/Resolved]
  - Somnolence [Unknown]
  - Drug intolerance [Unknown]
  - Injection site discolouration [Unknown]
  - Palpitations [Recovered/Resolved]
  - Malaise [Unknown]
  - Feeling abnormal [Unknown]
  - Headache [Recovered/Resolved]

NARRATIVE: CASE EVENT DATE: 201710
